FAERS Safety Report 17204444 (Version 3)
Quarter: 2020Q2

REPORT INFORMATION
  Report Type: Spontaneous
  Country: SI (occurrence: SI)
  Receive Date: 20191226
  Receipt Date: 20200421
  Transmission Date: 20200713
  Serious: Yes (Hospitalization)
  Sender: FDA-Public Use
  Company Number: SI-JNJFOC-20191230606

PATIENT
  Age: 43 Year
  Sex: Male
  Weight: 80 kg

DRUGS (1)
  1. STELARA [Suspect]
     Active Substance: USTEKINUMAB
     Indication: CROHN^S DISEASE
     Route: 058
     Dates: start: 20150715, end: 20191010

REACTIONS (1)
  - Intestinal adenocarcinoma [Unknown]

NARRATIVE: CASE EVENT DATE: 20191210
